FAERS Safety Report 21343483 (Version 1)
Quarter: 2022Q3

REPORT INFORMATION
  Report Type: Spontaneous
  Country: US (occurrence: None)
  Receive Date: 20220916
  Receipt Date: 20220916
  Transmission Date: 20221026
  Serious: Yes (Other)
  Sender: FDA-Public Use
  Company Number: None

PATIENT
  Age: 34 Year
  Sex: Female
  Weight: 101.5 kg

DRUGS (1)
  1. AMIVANTAMAB [Suspect]
     Active Substance: AMIVANTAMAB
     Indication: Colon cancer
     Dosage: FREQUENCY : DAILY;?
     Route: 042
     Dates: start: 20220912

REACTIONS (4)
  - Dyspnoea [None]
  - Lethargy [None]
  - Chest discomfort [None]
  - Depressed level of consciousness [None]

NARRATIVE: CASE EVENT DATE: 20220913
